FAERS Safety Report 7771014-9 (Version None)
Quarter: 2011Q3

REPORT INFORMATION
  Report Type: 
  Country: None (occurrence: None)
  Receive Date: 20110922
  Receipt Date: 20100914
  Transmission Date: 20111222
  Serious: No
  Sender: FDA-Public Use
  Company Number: US-ASTRAZENECA-2010SE43248

PATIENT
  Age: 813 Month
  Sex: Male
  Weight: 99.8 kg

DRUGS (6)
  1. ASPIRIN [Concomitant]
     Indication: CARDIAC DISORDER
     Dosage: DAILY
     Route: 048
  2. ARICEPT [Concomitant]
     Indication: AMNESIA
     Dosage: DAILY
     Route: 048
  3. LEXAPRO [Concomitant]
     Indication: DEPRESSION
     Route: 048
  4. LOVAZA [Concomitant]
     Dosage: DAILY
     Route: 048
  5. SEROQUEL XR [Suspect]
     Indication: DEPRESSION
     Route: 048
     Dates: start: 20100201, end: 20100401
  6. VITAMIN TAB [Concomitant]
     Dosage: DAILY
     Route: 048

REACTIONS (3)
  - DYSKINESIA [None]
  - LIMB DISCOMFORT [None]
  - RESTLESS LEGS SYNDROME [None]
